FAERS Safety Report 8610040-4 (Version None)
Quarter: 2012Q3

REPORT INFORMATION
  Report Type: 
  Country: None (occurrence: None)
  Receive Date: 20120822
  Receipt Date: 20120719
  Transmission Date: 20120928
  Serious: Yes (Hospitalization)
  Sender: FDA-Public Use
  Company Number: JP-009507513-1205USA00451

PATIENT

DRUGS (7)
  1. DIOVAN [Concomitant]
     Indication: HYPERTENSION
     Dosage: DIVIDED DOSE FREQUENCY U
     Route: 048
     Dates: start: 20110613
  2. AMARYL [Concomitant]
     Indication: DIABETES MELLITUS
     Dosage: DIVIDED DOSE FREQUENCY U
     Route: 048
     Dates: start: 20110623, end: 20110920
  3. AMARYL [Concomitant]
     Route: 048
     Dates: start: 20060214
  4. JANUVIA [Suspect]
     Indication: DIABETES MELLITUS
     Route: 048
     Dates: start: 20110613, end: 20111031
  5. AMARYL [Concomitant]
     Dosage: DIVIDED DOSE FREQUENCY U
     Route: 048
     Dates: start: 20110920
  6. PURSENNID (SENNOSIDES) [Concomitant]
     Indication: CONSTIPATION
     Route: 048
     Dates: start: 20110816
  7. DIOVAN [Concomitant]
     Route: 048
     Dates: start: 20100819

REACTIONS (1)
  - INTESTINAL OBSTRUCTION [None]
